FAERS Safety Report 10240919 (Version 3)
Quarter: 2014Q3

REPORT INFORMATION
  Report Type: Spontaneous
  Country: US (occurrence: US)
  Receive Date: 20140617
  Receipt Date: 20140826
  Transmission Date: 20150326
  Serious: No
  Sender: FDA-Public Use
  Company Number: US-JNJFOC-20140601306

PATIENT
  Sex: Male

DRUGS (2)
  1. OXYCODONE [Concomitant]
     Active Substance: OXYCODONE
     Indication: DIABETIC NEUROPATHY
  2. DURAGESIC [Suspect]
     Active Substance: FENTANYL
     Indication: PAIN
     Route: 062

REACTIONS (6)
  - Product packaging quantity issue [Unknown]
  - Incorrect drug administration duration [Not Recovered/Not Resolved]
  - Drug diversion [Unknown]
  - Wrong technique in drug usage process [Unknown]
  - Drug diversion [Not Recovered/Not Resolved]
  - Product quality issue [Unknown]
